FAERS Safety Report 4366489-1 (Version None)
Quarter: 2004Q2

REPORT INFORMATION
  Report Type: 
  Country: None (occurrence: None)
  Receive Date: 20040527
  Receipt Date: 20040422
  Transmission Date: 20050107
  Serious: No
  Sender: FDA-Public Use
  Company Number: US-BRISTOL-MYERS SQUIBB COMPANY-12567939

PATIENT
  Age: 46 Year
  Sex: Male

DRUGS (3)
  1. ERBITUX [Suspect]
     Indication: COLON CANCER
     Dosage: LOADING DOSE OF 700 MG ON 24-MAR-2004.
     Route: 042
     Dates: start: 20040401, end: 20040401
  2. BENADRYL [Concomitant]
     Indication: PREMEDICATION
     Dosage: ALSO ADMINISTERED ON 24-MAR-2004.
     Dates: start: 20040401, end: 20040401
  3. IRINOTECAN [Concomitant]
     Dosage: ADMINISTERED POST DOSING.  ALSO ADMINISTERED POST DOSING ON 24-MAR-2004.
     Route: 042
     Dates: start: 20040401, end: 20040401

REACTIONS (1)
  - DERMATITIS ACNEIFORM [None]
